FAERS Safety Report 5757129-5 (Version None)
Quarter: 2008Q2

REPORT INFORMATION
  Report Type: 
  Country: None (occurrence: None)
  Receive Date: 20080603
  Receipt Date: 20080526
  Transmission Date: 20081010
  Serious: Yes (Other)
  Sender: FDA-Public Use
  Company Number: GR-ELI_LILLY_AND_COMPANY-GR200804005964

PATIENT
  Age: 77 Year
  Sex: Male
  Weight: 70 kg

DRUGS (4)
  1. FORTEO [Suspect]
     Indication: OSTEOPOROTIC FRACTURE
     Dosage: UNK, UNKNOWN
     Route: 065
  2. ANGORON [Concomitant]
     Indication: ARRHYTHMIA
     Dosage: 200 MG, DAILY (1/D)
     Route: 065
  3. SPIRIVA [Concomitant]
     Indication: CHRONIC OBSTRUCTIVE PULMONARY DISEASE
     Dosage: UNK, UNKNOWN
     Route: 055
  4. NEORAL [Concomitant]
     Indication: PSORIASIS
     Dosage: UNK, UNKNOWN
     Route: 048

REACTIONS (1)
  - OEDEMA PERIPHERAL [None]
